FAERS Safety Report 18416727 (Version 1)
Quarter: 2020Q4

REPORT INFORMATION
  Report Type: Report from Study
  Country: FR (occurrence: FR)
  Receive Date: 20201022
  Receipt Date: 20201022
  Transmission Date: 20210114
  Serious: Yes (Hospitalization)
  Sender: FDA-Public Use
  Company Number: FR-TEVA-2020-FR-1839567

PATIENT
  Age: 65 Year
  Sex: Female

DRUGS (4)
  1. TAXOL [Suspect]
     Active Substance: PACLITAXEL
     Indication: METASTASES TO PERITONEUM
     Dosage: VIA TOTALLY IMPLANTABLE CENTRAL VENOUS ACCESS DEVICE
     Route: 041
  2. CARBOPLATIN. [Suspect]
     Active Substance: CARBOPLATIN
     Indication: OVARIAN CANCER
  3. TAXOL [Suspect]
     Active Substance: PACLITAXEL
     Indication: OVARIAN CANCER
  4. CARBOPLATIN. [Suspect]
     Active Substance: CARBOPLATIN
     Indication: METASTASES TO PERITONEUM
     Dosage: VIA TOTALLY IMPLANTABLE CENTRAL VENOUS ACCESS DEVICE
     Route: 041

REACTIONS (4)
  - Infusion site pain [Recovering/Resolving]
  - Infusion site extravasation [Recovering/Resolving]
  - Administration site extravasation [Recovering/Resolving]
  - Infusion site oedema [Recovering/Resolving]
